FAERS Safety Report 23319434 (Version 1)
Quarter: 2023Q4

REPORT INFORMATION
  Report Type: Spontaneous
  Country: KR (occurrence: KR)
  Receive Date: 20231220
  Receipt Date: 20231220
  Transmission Date: 20240109
  Serious: Yes (Other)
  Sender: FDA-Public Use
  Company Number: KR-CELLTRION INC.-2023KR024073

PATIENT

DRUGS (3)
  1. RITUXIMAB [Suspect]
     Active Substance: RITUXIMAB
     Indication: Follicular lymphoma stage III
     Dosage: 6 TIMES OF BENDAMUSTINE+RTX REGIMEN
  2. RITUXIMAB [Suspect]
     Active Substance: RITUXIMAB
     Dosage: RTX-MAINTENANCE THERAPY
  3. BENDAMUSTINE [Suspect]
     Active Substance: BENDAMUSTINE
     Indication: Follicular lymphoma stage III
     Dosage: 6 TIMES OF BENDAMUSTINE+RTX REGIMEN

REACTIONS (2)
  - Interstitial lung disease [Recovered/Resolved]
  - Therapy partial responder [Unknown]
